FAERS Safety Report 18036480 (Version 3)
Quarter: 2020Q3

REPORT INFORMATION
  Report Type: Spontaneous
  Country: US (occurrence: US)
  Receive Date: 20200717
  Receipt Date: 20200831
  Transmission Date: 20201103
  Serious: No
  Sender: FDA-Public Use
  Company Number: US-009507513-2007USA006046

PATIENT
  Age: 26 Year
  Sex: Female

DRUGS (2)
  1. NEXPLANON [Suspect]
     Active Substance: ETONOGESTREL
     Dosage: 1 EVERY THREE YEAR (1 DOSAGE FORM)
     Route: 059
     Dates: start: 20190627, end: 20200706
  2. NEXPLANON [Suspect]
     Active Substance: ETONOGESTREL
     Dosage: 1 EVERY 3 YEARS
     Route: 059
     Dates: start: 20200706

REACTIONS (2)
  - Device breakage [Recovered/Resolved]
  - No adverse event [Unknown]

NARRATIVE: CASE EVENT DATE: 20200705
